FAERS Safety Report 8297334-X (Version None)
Quarter: 2012Q1

REPORT INFORMATION
  Report Type: 
  Country: None (occurrence: None)
  Receive Date: 20120322
  Receipt Date: 20120124
  Transmission Date: 20120608
  Serious: Yes (Hospitalization)
  Sender: FDA-Public Use
  Company Number: UTC-013129

PATIENT
  Age: 66 Year
  Sex: Female
  Weight: 111.3 kg

DRUGS (5)
  1. LETAIRIS [Concomitant]
  2. COUMADIN [Concomitant]
  3. TYVASO [Suspect]
  4. TYVASO [Suspect]
     Indication: PULMONARY ARTERIAL HYPERTENSION
     Dosage: 18-54 MICROGRAMS (4 IN 1 D),INHALATION
     Route: 055
     Dates: start: 20110127
  5. ADCIRCA [Concomitant]

REACTIONS (1)
  - PNEUMONIA [None]
